FAERS Safety Report 9921016 (Version 1)
Quarter: 2014Q1

REPORT INFORMATION
  Report Type: Spontaneous
  Country: US (occurrence: US)
  Receive Date: 20140225
  Receipt Date: 20140225
  Transmission Date: 20141002
  Serious: No
  Sender: FDA-Public Use
  Company Number: US-009507513-1402USA009422

PATIENT
  Sex: 0

DRUGS (3)
  1. SYLATRON [Suspect]
     Dosage: UNK,
  2. SYLATRON [Suspect]
     Dosage: UNK,
  3. SYLATRON [Suspect]
     Dosage: UNK,

REACTIONS (6)
  - Depression [Recovered/Resolved]
  - Anxiety [Recovered/Resolved]
  - Irritability [Recovered/Resolved]
  - Depressed mood [Recovered/Resolved]
  - Pyrexia [Unknown]
  - Pain [Unknown]
